FAERS Safety Report 11213322 (Version 1)
Quarter: 2015Q2

REPORT INFORMATION
  Report Type: Spontaneous
  Country: US (occurrence: None)
  Receive Date: 20150622
  Receipt Date: 20150622
  Transmission Date: 20150821
  Serious: Yes (Disabling, Other)
  Sender: FDA-Public Use
  Company Number: None

PATIENT
  Age: 67 Year
  Sex: Female
  Weight: 58.97 kg

DRUGS (6)
  1. SYMBACOIRT [Concomitant]
  2. VITAMINB [Concomitant]
  3. OMPREZOLE [Concomitant]
     Active Substance: OMEPRAZOLE
  4. ALENDRONATE 70MG NORTHSTAR [Suspect]
     Active Substance: ALENDRONATE SODIUM
     Indication: BONE DENSITY DECREASED
     Route: 048
  5. SYNTHROID [Concomitant]
     Active Substance: LEVOTHYROXINE SODIUM
  6. CALCIUM WITH D3 [Concomitant]

REACTIONS (11)
  - Headache [None]
  - Chest pain [None]
  - Diarrhoea [None]
  - Dyspepsia [None]
  - Dizziness [None]
  - Muscle spasms [None]
  - Arthralgia [None]
  - Myalgia [None]
  - Dysphagia [None]
  - Pain in extremity [None]
  - Activities of daily living impaired [None]

NARRATIVE: CASE EVENT DATE: 20150115
